FAERS Safety Report 4562841-X (Version None)
Quarter: 2005Q1

REPORT INFORMATION
  Report Type: 
  Country: None (occurrence: None)
  Receive Date: 20050121
  Receipt Date: 20050104
  Transmission Date: 20050727
  Serious: No
  Sender: FDA-Public Use
  Company Number: 2004AC00842

PATIENT
  Sex: Male

DRUGS (2)
  1. MERONEM [Suspect]
     Indication: PNEUMONIA
     Dosage: 3 G IV
     Route: 042
  2. DEPAKENE [Suspect]
     Indication: EPILEPSY

REACTIONS (4)
  - ANTICONVULSANT DRUG LEVEL DECREASED [None]
  - DISEASE RECURRENCE [None]
  - DRUG INTERACTION [None]
  - EPILEPSY [None]
